FAERS Safety Report 9779296 (Version 1)
Quarter: 2013Q4

REPORT INFORMATION
  Report Type: Spontaneous
  Country: PL (occurrence: PL)
  Receive Date: 20131223
  Receipt Date: 20131223
  Transmission Date: 20140711
  Serious: Yes (Hospitalization)
  Sender: FDA-Public Use
  Company Number: PL-B.I. PHARMACEUTICALS,INC./RIDGEFIELD-2013-BI-42665PN

PATIENT
  Age: 80 Year
  Sex: Female

DRUGS (2)
  1. PRADAXA [Suspect]
     Indication: ATRIAL FIBRILLATION
     Dosage: 300 MG
  2. ACARD / ACETYLSALICYLIC ACID [Concomitant]
     Dosage: 75 MG
     Route: 048

REACTIONS (2)
  - Renal failure [Not Recovered/Not Resolved]
  - Haemorrhage [Unknown]
